FAERS Safety Report 5855039-6 (Version None)
Quarter: 2008Q3

REPORT INFORMATION
  Report Type: 
  Country: None (occurrence: None)
  Receive Date: 20080822
  Receipt Date: 20080528
  Transmission Date: 20090109
  Serious: No
  Sender: FDA-Public Use
  Company Number: US-ABBOTT-08P-163-0455888-00

PATIENT
  Sex: Female
  Weight: 69.462 kg

DRUGS (1)
  1. SYNTHROID [Suspect]
     Indication: HORMONE REPLACEMENT THERAPY
     Dates: start: 19980101

REACTIONS (2)
  - DRUG LEVEL CHANGED [None]
  - FATIGUE [None]
